FAERS Safety Report 5723514-0 (Version None)
Quarter: 2008Q2

REPORT INFORMATION
  Report Type: 
  Country: None (occurrence: None)
  Receive Date: 20080425
  Receipt Date: 20080131
  Transmission Date: 20081010
  Serious: No
  Sender: FDA-Public Use
  Company Number: 2008-BP-01544BP

PATIENT
  Age: 76 Year
  Sex: Female

DRUGS (1)
  1. APTIVUS [Suspect]

REACTIONS (1)
  - GASTROINTESTINAL DISORDER [None]
